FAERS Safety Report 6806118-8 (Version None)
Quarter: 2010Q2

REPORT INFORMATION
  Report Type: 
  Country: None (occurrence: None)
  Receive Date: 20100629
  Receipt Date: 20071219
  Transmission Date: 20101027
  Serious: Yes (Other)
  Sender: FDA-Public Use
  Company Number: US-PFIZER INC-2007104797

PATIENT
  Age: 37 Year
  Sex: Female

DRUGS (1)
  1. ZYVOX [Suspect]

REACTIONS (2)
  - ANTIMICROBIAL SUSCEPTIBILITY TEST RESISTANT [None]
  - DRUG INEFFECTIVE [None]
